FAERS Safety Report 8022621-X (Version None)
Quarter: 2012Q1

REPORT INFORMATION
  Report Type: 
  Country: None (occurrence: None)
  Receive Date: 20120104
  Receipt Date: 20111226
  Transmission Date: 20120608
  Serious: Yes (Hospitalization)
  Sender: FDA-Public Use
  Company Number: FR-GLAXOSMITHKLINE-B0771481A

PATIENT
  Age: 45 Year
  Sex: Female

DRUGS (5)
  1. LAMICTAL [Suspect]
     Indication: PRODUCT USED FOR UNKNOWN INDICATION
     Dosage: 150MG PER DAY
     Route: 048
     Dates: start: 20110718, end: 20110731
  2. IXEL [Suspect]
     Route: 048
     Dates: start: 20110718, end: 20110802
  3. LITHIUM [Concomitant]
     Route: 065
  4. OXAZEPAM [Concomitant]
     Route: 065
  5. NOCTAMIDE [Concomitant]
     Route: 065
     Dates: start: 20110718

REACTIONS (10)
  - LARYNGEAL OEDEMA [None]
  - PYREXIA [None]
  - CHEILITIS [None]
  - TACHYCARDIA [None]
  - INFLAMMATION [None]
  - HYPOTENSION [None]
  - TOXIC SKIN ERUPTION [None]
  - HYPONATRAEMIA [None]
  - HEPATOCELLULAR INJURY [None]
  - RASH PAPULAR [None]
